FAERS Safety Report 14159157 (Version 2)
Quarter: 2017Q4

REPORT INFORMATION
  Report Type: Report from Study
  Country: BR (occurrence: BR)
  Receive Date: 20171103
  Receipt Date: 20171126
  Transmission Date: 20180321
  Serious: Yes (Death, Hospitalization)
  Sender: FDA-Public Use
  Company Number: PHHY2017BR160645

PATIENT
  Sex: Female
  Weight: 40 kg

DRUGS (1)
  1. EXJADE [Suspect]
     Active Substance: DEFERASIROX
     Indication: IRON OVERLOAD
     Dosage: 4 DF, QD
     Route: 048
     Dates: start: 20110730

REACTIONS (4)
  - Pulmonary embolism [Unknown]
  - Weight decreased [Unknown]
  - Death [Fatal]
  - Malaise [Unknown]
